FAERS Safety Report 12467451 (Version 1)
Quarter: 2016Q2

REPORT INFORMATION
  Report Type: Spontaneous
  Country: US (occurrence: US)
  Receive Date: 20160615
  Receipt Date: 20160615
  Transmission Date: 20160815
  Serious: No
  Sender: FDA-Public Use
  Company Number: US-TEVA-596508USA

PATIENT
  Age: 74 Year
  Sex: Male
  Weight: 61.29 kg

DRUGS (3)
  1. CIPROFLOXACIN. [Suspect]
     Active Substance: CIPROFLOXACIN
     Indication: RECTAL DISCHARGE
     Route: 065
     Dates: start: 20150910, end: 20150914
  2. CIPROFLOXACIN. [Suspect]
     Active Substance: CIPROFLOXACIN
     Indication: ORAL INFECTION
  3. CIPROFLOXACIN. [Suspect]
     Active Substance: CIPROFLOXACIN
     Indication: TOOTH INFECTION

REACTIONS (7)
  - Hallucination, auditory [Unknown]
  - Drug dose omission [Unknown]
  - Muscular weakness [Unknown]
  - Dysgeusia [Unknown]
  - Ageusia [Unknown]
  - Nervousness [Unknown]
  - Asthenia [Unknown]

NARRATIVE: CASE EVENT DATE: 20150910
